FAERS Safety Report 12926482 (Version 2)
Quarter: 2016Q4

REPORT INFORMATION
  Report Type: Spontaneous
  Country: GB (occurrence: GB)
  Receive Date: 20161109
  Receipt Date: 20161130
  Transmission Date: 20170207
  Serious: Yes (Other)
  Sender: FDA-Public Use
  Company Number: GB-TEVA-709515ACC

PATIENT
  Age: 75 Year
  Sex: Male

DRUGS (1)
  1. APO-OXAZEPAM [Suspect]
     Active Substance: OXAZEPAM
     Dosage: AT NIGHT

REACTIONS (3)
  - Drug dose omission [Unknown]
  - Loss of consciousness [Unknown]
  - Pollakiuria [Unknown]
